FAERS Safety Report 7873490-X (Version None)
Quarter: 2011Q4

REPORT INFORMATION
  Report Type: 
  Country: None (occurrence: None)
  Receive Date: 20111012
  Receipt Date: 20100923
  Transmission Date: 20120403
  Serious: Yes (Other)
  Sender: FDA-Public Use
  Company Number: 2211100-US-JNJFOC-20100907561

PATIENT
  Age: 30 Year
  Sex: Female
  Weight: 148.3262 kg

DRUGS (6)
  1. PRILOSEC [Concomitant]
  2. LISINOPRIL [Concomitant]
  3. HYDROCHLOROTHIAZIDE [Concomitant]
  4. METFORMIN HCL [Concomitant]
  5. MONISTAT [Suspect]
     Indication: FUNGAL INFECTION
     Dosage: 1200 MG, 1 IN 1 D, VAGINAL
     Route: 067
     Dates: start: 20100921, end: 20100921
  6. MONISTAT [Suspect]
     Indication: FUNGAL INFECTION
     Dosage: 1 IN 1 DAY, TOPICAL
     Route: 061
     Dates: start: 20100921, end: 20100921

REACTIONS (3)
  - DYSURIA [None]
  - GENITAL BURNING SENSATION [None]
  - ABDOMINAL PAIN [None]
